FAERS Safety Report 7746151-5 (Version None)
Quarter: 2011Q3

REPORT INFORMATION
  Report Type: 
  Country: None (occurrence: None)
  Receive Date: 20110913
  Receipt Date: 20110907
  Transmission Date: 20111222
  Serious: Yes (Hospitalization, Other)
  Sender: FDA-Public Use
  Company Number: BR-ROCHE-770085

PATIENT
  Sex: Female
  Weight: 58 kg

DRUGS (13)
  1. TOCILIZUMAB [Suspect]
     Route: 042
     Dates: start: 20100801, end: 20100801
  2. AMITRIPTYLINE HCL [Concomitant]
  3. TOCILIZUMAB [Suspect]
     Route: 042
     Dates: start: 20100715, end: 20100715
  4. TOCILIZUMAB [Suspect]
     Indication: RHEUMATOID ARTHRITIS
     Dosage: EVERY 28 DAYS CYCLE, DRUG REPORTED AS ACTEMRA
     Route: 042
     Dates: start: 20100515
  5. TORAGESIC [Concomitant]
     Indication: PAIN
  6. PANTOPRAZOLE [Concomitant]
  7. TOCILIZUMAB [Suspect]
     Route: 042
     Dates: start: 20100615, end: 20100615
  8. TOCILIZUMAB [Suspect]
     Route: 042
  9. FOLIC ACID [Concomitant]
  10. PREDNISOLONE [Concomitant]
  11. PHENERGAN [Suspect]
     Dosage: START DATE, STOP DATE, DOSE, ROUTE AND FREQUENCY NOT PROVIDED.
     Route: 065
  12. METHOTREXATE [Concomitant]
     Dosage: FREQUENCY REPORTED AS 5 TABLETS PER WEEK.
  13. TRAMADOL HYDROCHLORIDE [Concomitant]

REACTIONS (7)
  - RASH MACULAR [None]
  - RHEUMATOID ARTHRITIS [None]
  - PAIN [None]
  - HYPERSENSITIVITY [None]
  - BLOOD PRESSURE FLUCTUATION [None]
  - DRUG INTOLERANCE [None]
  - ARTHROPATHY [None]
